FAERS Safety Report 9373710 (Version 2)
Quarter: 2013Q3

REPORT INFORMATION
  Report Type: Spontaneous
  Country: US (occurrence: US)
  Receive Date: 20130627
  Receipt Date: 20130712
  Transmission Date: 20140515
  Serious: Yes (Hospitalization, Other)
  Sender: FDA-Public Use
  Company Number: US-BAXTER-2013BAX023717

PATIENT
  Age: 64 Year
  Sex: Female

DRUGS (4)
  1. DIANEAL LOW CALCIUM [Suspect]
     Indication: PERITONEAL DIALYSIS
     Route: 033
  2. DIANEAL LOW CALCIUM [Suspect]
     Route: 033
     Dates: start: 20130415
  3. DIANEAL LOW CALCIUM [Suspect]
     Indication: PERITONEAL DIALYSIS
     Route: 033
  4. DIANEAL LOW CALCIUM [Suspect]
     Route: 033
     Dates: start: 20130415

REACTIONS (10)
  - Fall [Recovered/Resolved]
  - Head injury [Unknown]
  - Joint injury [Unknown]
  - Confusional state [Recovering/Resolving]
  - Gait disturbance [Recovering/Resolving]
  - Dyskinesia [Unknown]
  - Staphylococcus test positive [Recovered/Resolved]
  - Upper limb fracture [Recovering/Resolving]
  - Spinal fracture [Recovering/Resolving]
  - Fractured coccyx [Recovering/Resolving]
